FAERS Safety Report 10223796 (Version 2)
Quarter: 2014Q2

REPORT INFORMATION
  Report Type: Spontaneous
  Country: US (occurrence: US)
  Receive Date: 20140609
  Receipt Date: 20140609
  Transmission Date: 20141212
  Serious: No
  Sender: FDA-Public Use
  Company Number: US-DRREDDYS-USA/USA/14/0038995

PATIENT
  Age: 68 Year
  Sex: Female
  Weight: 49.8 kg

DRUGS (2)
  1. FEXOFENADINE HCL  OTC [Suspect]
     Indication: HYPERSENSITIVITY
     Route: 048
  2. FEXOFENADINE HCL  OTC [Suspect]
     Route: 048

REACTIONS (1)
  - Headache [Recovered/Resolved]
